FAERS Safety Report 8303442-7 (Version None)
Quarter: 2012Q2

REPORT INFORMATION
  Report Type: 
  Country: None (occurrence: None)
  Receive Date: 20120423
  Receipt Date: 20120418
  Transmission Date: 20120825
  Serious: No
  Sender: FDA-Public Use
  Company Number: US-PFIZER INC-2012097144

PATIENT

DRUGS (1)
  1. TIKOSYN [Suspect]
     Indication: ATRIAL FLUTTER
     Dosage: UNK
     Route: 048

REACTIONS (2)
  - PYREXIA [None]
  - BACTERIAL INFECTION [None]
